FAERS Safety Report 7739237-2 (Version None)
Quarter: 2011Q3

REPORT INFORMATION
  Report Type: 
  Country: None (occurrence: None)
  Receive Date: 20110909
  Receipt Date: 20110829
  Transmission Date: 20111222
  Serious: Yes (Other)
  Sender: FDA-Public Use
  Company Number: US-JNJFOC-20110901579

PATIENT
  Sex: Male

DRUGS (2)
  1. NORCO [Concomitant]
     Indication: PAIN
     Route: 048
     Dates: end: 20110801
  2. HALDOL [Suspect]
     Indication: PRODUCT USED FOR UNKNOWN INDICATION
     Route: 048

REACTIONS (3)
  - WEIGHT DECREASED [None]
  - TARDIVE DYSKINESIA [None]
  - CONVULSION [None]
